FAERS Safety Report 17024416 (Version 1)
Quarter: 2019Q4

REPORT INFORMATION
  Report Type: Spontaneous
  Country: US (occurrence: US)
  Receive Date: 20191113
  Receipt Date: 20191113
  Transmission Date: 20200122
  Serious: Yes (Other)
  Sender: FDA-Public Use
  Company Number: US-BEH-2019109073

PATIENT
  Sex: Female
  Weight: 62.59 kg

DRUGS (5)
  1. ORENITRAM [Suspect]
     Active Substance: TREPROSTINIL
     Indication: PULMONARY ARTERIAL HYPERTENSION
     Dosage: 3 MILLIGRAM, TID
     Route: 048
     Dates: start: 20190118
  2. HIZENTRA [Suspect]
     Active Substance: HUMAN IMMUNOGLOBULIN G
     Dosage: UNK
     Route: 065
  3. ORENITRAM [Suspect]
     Active Substance: TREPROSTINIL
     Dosage: 3 MILLIGRAM, TID
     Route: 048
  4. ORENITRAM [Suspect]
     Active Substance: TREPROSTINIL
     Dosage: 3 MILLIGRAM, TID
     Route: 048
  5. NIFEDIPINE. [Concomitant]
     Active Substance: NIFEDIPINE
     Dosage: UNK
     Route: 065

REACTIONS (6)
  - Urinary tract infection [Unknown]
  - Dyspepsia [Unknown]
  - Scleroderma [Unknown]
  - Vulvovaginal pruritus [Unknown]
  - Pulmonary arterial pressure decreased [Unknown]
  - Dyspnoea exertional [Unknown]
